FAERS Safety Report 8137607-4 (Version None)
Quarter: 2012Q1

REPORT INFORMATION
  Report Type: 
  Country: None (occurrence: None)
  Receive Date: 20120103
  Receipt Date: 20110919
  Transmission Date: 20120608
  Serious: No
  Sender: FDA-Public Use
  Company Number: AE-2011-001361

PATIENT
  Age: 42 Year
  Sex: Female
  Weight: 81.6475 kg

DRUGS (7)
  1. NEURONTIN [Concomitant]
  2. PROZAC [Concomitant]
  3. PEGASYS [Concomitant]
  4. COPEGUS [Concomitant]
  5. ATARAX [Concomitant]
  6. LEVOTHYROXINE SODIUM [Concomitant]
  7. INCIVEK [Suspect]
     Dosage: 3375 MG (1125 MG, 3 IN 1 D), ORAL
     Route: 048
     Dates: start: 20110819

REACTIONS (4)
  - PRURITUS [None]
  - SKIN WARM [None]
  - RASH GENERALISED [None]
  - BLISTER [None]
